FAERS Safety Report 5661576-X (Version None)
Quarter: 2008Q1

REPORT INFORMATION
  Report Type: 
  Country: None (occurrence: None)
  Receive Date: 20080312
  Receipt Date: 20080305
  Transmission Date: 20080703
  Serious: Yes (Death, Other)
  Sender: FDA-Public Use
  Company Number: PHEH2006US02259

PATIENT

DRUGS (3)
  1. ZOMETA [Suspect]
     Indication: NEOPLASM MALIGNANT
  2. ACETAMINOPHEN AND OXYCODONE HCL [Concomitant]
  3. AREDIA [Suspect]

REACTIONS (28)
  - ANGIOSARCOMA [None]
  - ANXIETY [None]
  - BONE DISORDER [None]
  - BONE FRAGMENTATION [None]
  - DEFORMITY [None]
  - DENTAL OPERATION [None]
  - DEPRESSION [None]
  - EMOTIONAL DISTRESS [None]
  - ERYTHEMA [None]
  - GINGIVAL BLEEDING [None]
  - GINGIVAL SWELLING [None]
  - HEPATIC LESION [None]
  - IMPAIRED HEALING [None]
  - INJURY [None]
  - JOINT ARTHROPLASTY [None]
  - MASTICATION DISORDER [None]
  - METASTATIC NEOPLASM [None]
  - NEURALGIA [None]
  - ORAL CAVITY FISTULA [None]
  - OSTEONECROSIS [None]
  - OSTEOTOMY [None]
  - PAIN [None]
  - PERIODONTAL INFECTION [None]
  - SENSORY LOSS [None]
  - SPINAL OSTEOARTHRITIS [None]
  - STOMATITIS NECROTISING [None]
  - TOOTH ABSCESS [None]
  - TOOTH EXTRACTION [None]
